FAERS Safety Report 12366020 (Version 1)
Quarter: 2016Q2

REPORT INFORMATION
  Report Type: Spontaneous
  Country: US (occurrence: US)
  Receive Date: 20160513
  Receipt Date: 20160513
  Transmission Date: 20160815
  Serious: Yes (Hospitalization)
  Sender: FDA-Public Use
  Company Number: US-CIPLA LTD.-2015US03282

PATIENT

DRUGS (16)
  1. SELENIUM [Concomitant]
     Active Substance: SELENIUM
     Dosage: 100 ?G, QD
     Route: 065
  2. VITAMIN C [Concomitant]
     Active Substance: ASCORBIC ACID
     Dosage: 500 MG, QD
     Route: 065
  3. LEVOFLOXACIN. [Suspect]
     Active Substance: LEVOFLOXACIN
     Indication: BRONCHITIS
     Dosage: UNK
     Route: 048
     Dates: start: 201311
  4. MSM [Concomitant]
     Active Substance: DIMETHYL SULFONE
     Dosage: 300 MG, QD
     Route: 065
  5. LUTEIN [Concomitant]
     Active Substance: LUTEIN
     Dosage: 10 MG, QD
     Route: 065
  6. ASPIRIN. [Concomitant]
     Active Substance: ASPIRIN
     Indication: PAIN
     Dosage: 325 MG, NIGHTLY
     Route: 065
  7. LEVOFLOXACIN. [Suspect]
     Active Substance: LEVOFLOXACIN
     Dosage: 500 MG, QD
     Route: 048
     Dates: start: 20141010
  8. BIOTIN [Concomitant]
     Active Substance: BIOTIN
     Dosage: 1000 MG, QD
     Route: 065
  9. OMEGA-3 180 EPA/120 DHA [Concomitant]
     Dosage: UNK, BID
     Route: 065
  10. PREDNISONE. [Concomitant]
     Active Substance: PREDNISONE
     Dosage: UNK
     Route: 065
     Dates: start: 20141031, end: 20150223
  11. VITAMIN B100 COMPLEX [Concomitant]
     Dosage: UNK, QD
     Route: 065
  12. GARLIC. [Concomitant]
     Active Substance: GARLIC
     Dosage: UNK, QD
     Route: 065
  13. GLUCOSAMINE/CHONDROITIN [Concomitant]
     Dosage: 1000MG/1.2 G DAILY
     Route: 065
  14. BONE STRENGTH COMPLEX [Concomitant]
     Dosage: UNK, BID
     Route: 065
  15. INOSITOL [Concomitant]
     Active Substance: INOSITOL
     Dosage: 500 MG, QD
     Route: 065
  16. BENADRYL [Concomitant]
     Active Substance: DIPHENHYDRAMINE HYDROCHLORIDE
     Indication: SLEEP DISORDER
     Dosage: 25 MG, NIGHTLY FOR SLEEP
     Route: 065

REACTIONS (6)
  - Tendon pain [Not Recovered/Not Resolved]
  - Pain in extremity [Not Recovered/Not Resolved]
  - Arthralgia [Not Recovered/Not Resolved]
  - Walking aid user [Not Recovered/Not Resolved]
  - Myalgia [Not Recovered/Not Resolved]
  - Joint swelling [Not Recovered/Not Resolved]

NARRATIVE: CASE EVENT DATE: 201410
